FAERS Safety Report 9455278 (Version 2)
Quarter: 2014Q1

REPORT INFORMATION
  Report Type: Spontaneous
  Country: DK (occurrence: DK)
  Receive Date: 20130813
  Receipt Date: 20140117
  Transmission Date: 20141002
  Serious: Yes (Other)
  Sender: FDA-Public Use
  Company Number: DK-ACCORD-017396

PATIENT
  Age: 41 Year
  Sex: Female

DRUGS (7)
  1. ETOPOSIDE [Suspect]
     Indication: EWING^S SARCOMA
  2. FLUCONAZOLE [Interacting]
     Indication: ORAL CANDIDIASIS
     Dosage: 100 MG X 1, 10 DAY COURSE
  3. DOXORUBICIN [Interacting]
     Indication: EWING^S SARCOMA
  4. VINCRISTINE [Interacting]
     Indication: EWING^S SARCOMA
  5. IFOSFAMIDE [Interacting]
     Indication: EWING^S SARCOMA
  6. PREDNISOLONE [Interacting]
     Indication: PRODUCT USED FOR UNKNOWN INDICATION
  7. MIRTAZAPINE [Interacting]
     Indication: PRODUCT USED FOR UNKNOWN INDICATION

REACTIONS (6)
  - Mucosal inflammation [Unknown]
  - Drug interaction [Unknown]
  - Paraesthesia [Recovering/Resolving]
  - Motor dysfunction [Recovering/Resolving]
  - Renal impairment [Unknown]
  - Bone marrow failure [Unknown]
